FAERS Safety Report 8838918 (Version 1)
Quarter: 2012Q4

REPORT INFORMATION
  Report Type: Spontaneous
  Country: US (occurrence: None)
  Receive Date: 20121011
  Receipt Date: 20121011
  Transmission Date: 20130627
  Serious: No
  Sender: FDA-Public Use
  Company Number: None

PATIENT
  Sex: Female

DRUGS (1)
  1. AFINITOR [Suspect]
     Dosage: 5 MG DAILY PO
     Route: 048
     Dates: start: 20120531

REACTIONS (2)
  - Rash pruritic [None]
  - Renal tubular necrosis [None]
